FAERS Safety Report 7327487-9 (Version None)
Quarter: 2011Q1

REPORT INFORMATION
  Report Type: 
  Country: None (occurrence: None)
  Receive Date: 20110303
  Receipt Date: 20110222
  Transmission Date: 20110831
  Serious: No
  Sender: FDA-Public Use
  Company Number: US-BIOGENIDEC-2010BI023882

PATIENT
  Age: 53 Year
  Sex: Male

DRUGS (1)
  1. TYSABRI [Suspect]
     Indication: MULTIPLE SCLEROSIS
     Route: 042
     Dates: start: 20100518, end: 20110201

REACTIONS (10)
  - HYPOAESTHESIA [None]
  - FATIGUE [None]
  - DECREASED APPETITE [None]
  - ABASIA [None]
  - NAUSEA [None]
  - DRUG INEFFECTIVE [None]
  - WEIGHT DECREASED [None]
  - PARAESTHESIA [None]
  - MULTIPLE SCLEROSIS RELAPSE [None]
  - ASTHENIA [None]
